FAERS Safety Report 23077001 (Version 1)
Quarter: 2023Q4

REPORT INFORMATION
  Report Type: Spontaneous
  Country: PL (occurrence: PL)
  Receive Date: 20231018
  Receipt Date: 20231018
  Transmission Date: 20240110
  Serious: Yes (Other)
  Sender: FDA-Public Use
  Company Number: PL-JNJFOC-20231036489

PATIENT
  Age: 80 Year
  Sex: Female

DRUGS (1)
  1. IMBRUVICA [Suspect]
     Active Substance: IBRUTINIB
     Indication: Chronic lymphocytic leukaemia
     Route: 048

REACTIONS (7)
  - Platelet disorder [Unknown]
  - Skin discolouration [Unknown]
  - Lymphocytosis [Unknown]
  - Infection [Unknown]
  - Off label use [Unknown]
  - Hypertension [Unknown]
  - Bronchitis [Unknown]
